FAERS Safety Report 10337512 (Version 2)
Quarter: 2014Q3

REPORT INFORMATION
  Report Type: Spontaneous
  Country: MX (occurrence: MX)
  Receive Date: 20140724
  Receipt Date: 20140724
  Transmission Date: 20150326
  Serious: Yes (Disabling, Other)
  Sender: FDA-Public Use
  Company Number: MX-ORION CORPORATION ORION PHARMA-ENTC2013-0065

PATIENT
  Age: 62 Year
  Sex: Male

DRUGS (6)
  1. SERTRALINE [Concomitant]
     Active Substance: SERTRALINE HYDROCHLORIDE
     Route: 065
     Dates: start: 2012
  2. BIPERIDENO HYDROCHLORIDE [Concomitant]
     Route: 065
     Dates: start: 201201
  3. RASAGILINE [Concomitant]
     Active Substance: RASAGILINE
     Route: 065
     Dates: start: 201201
  4. CLONAZEPAM. [Concomitant]
     Active Substance: CLONAZEPAM
     Route: 065
     Dates: start: 2012
  5. AMANTADINE [Concomitant]
     Active Substance: AMANTADINE
     Route: 065
     Dates: start: 201201
  6. STALEVO [Suspect]
     Active Substance: CARBIDOPA\ENTACAPONE\LEVODOPA
     Indication: PARKINSON^S DISEASE
     Dosage: STRENGTH: 150/37.5/200 MG
     Route: 048
     Dates: start: 201101

REACTIONS (4)
  - Asthenia [Not Recovered/Not Resolved]
  - Spinal pain [Recovered/Resolved]
  - Dysstasia [Recovered/Resolved]
  - Impaired self-care [Not Recovered/Not Resolved]

NARRATIVE: CASE EVENT DATE: 201210
